FAERS Safety Report 16486300 (Version 1)
Quarter: 2019Q2

REPORT INFORMATION
  Report Type: Spontaneous
  Country: JP (occurrence: JP)
  Receive Date: 20190627
  Receipt Date: 20190627
  Transmission Date: 20190711
  Serious: Yes (Other)
  Sender: FDA-Public Use
  Company Number: PHJP2019JP007441

PATIENT

DRUGS (1)
  1. GLIVEC [Suspect]
     Active Substance: IMATINIB MESYLATE
     Indication: EOSINOPHIL COUNT INCREASED
     Dosage: UNK
     Route: 048

REACTIONS (2)
  - Myelodysplastic syndrome [Unknown]
  - Concomitant disease aggravated [Unknown]
